FAERS Safety Report 4869395-9 (Version None)
Quarter: 2005Q4

REPORT INFORMATION
  Report Type: 
  Country: None (occurrence: None)
  Receive Date: 20051230
  Receipt Date: 20050928
  Transmission Date: 20060501
  Serious: Yes (Hospitalization)
  Sender: FDA-Public Use
  Company Number: US-MERCK-0509USA04794

PATIENT
  Age: 61 Year
  Sex: Female
  Weight: 64 kg

DRUGS (10)
  1. VIOXX [Suspect]
     Indication: ARTHRITIS
     Route: 048
     Dates: start: 19991201, end: 20000701
  2. PREMARIN [Concomitant]
     Route: 065
  3. PAXIL [Concomitant]
     Route: 065
  4. TYLENOL [Concomitant]
     Route: 065
  5. ASPIRIN [Concomitant]
     Route: 065
  6. VITAMINS (UNSPECIFIED) [Concomitant]
     Route: 065
  7. MECLIZINE [Concomitant]
     Route: 065
  8. POTASSIUM CHLORIDE [Concomitant]
     Route: 065
  9. LORATADINE [Concomitant]
     Route: 065
  10. FUROSEMIDE [Concomitant]
     Route: 065

REACTIONS (14)
  - ANXIETY [None]
  - CEREBROVASCULAR ACCIDENT [None]
  - DEPRESSION [None]
  - DIARRHOEA [None]
  - HYPERTENSION [None]
  - INNER EAR DISORDER [None]
  - JOINT INJURY [None]
  - LUNG INFILTRATION [None]
  - MUSCLE SPASMS [None]
  - PUSTULAR PSORIASIS [None]
  - SINUS HEADACHE [None]
  - SLEEP DISORDER [None]
  - TEMPOROMANDIBULAR JOINT SYNDROME [None]
  - WEIGHT INCREASED [None]
